FAERS Safety Report 4883696-X (Version None)
Quarter: 2006Q1

REPORT INFORMATION
  Report Type: 
  Country: None (occurrence: None)
  Receive Date: 20060118
  Receipt Date: 20060109
  Transmission Date: 20060701
  Serious: Yes (Hospitalization, Other)
  Sender: FDA-Public Use
  Company Number: PHNU2006DE00476

PATIENT
  Age: 72 Year
  Sex: Male

DRUGS (5)
  1. BONDRONAT [Suspect]
     Dates: start: 20020827
  2. ZOMETA [Suspect]
     Indication: METASTASES TO BONE
     Dosage: 4 MG, QMO
     Route: 042
     Dates: start: 20020827
  3. CASODEX [Concomitant]
     Route: 048
  4. ZOLADEX [Concomitant]
     Route: 065
  5. RADIOTHERAPY [Concomitant]
     Route: 065

REACTIONS (6)
  - BONE OPERATION [None]
  - DENTAL OPERATION [None]
  - IMPAIRED HEALING [None]
  - OPEN WOUND [None]
  - OSTEONECROSIS [None]
  - POST PROCEDURAL COMPLICATION [None]
